FAERS Safety Report 12105563 (Version 2)
Quarter: 2016Q2

REPORT INFORMATION
  Report Type: Report from Study
  Country: CO (occurrence: CO)
  Receive Date: 20160223
  Receipt Date: 20160513
  Transmission Date: 20160815
  Serious: Yes (Other)
  Sender: FDA-Public Use
  Company Number: CO-JNJFOC-20160217254

PATIENT
  Age: 61 Year
  Sex: Female
  Weight: 60 kg

DRUGS (5)
  1. VITAMIN B6 [Concomitant]
     Active Substance: PYRIDOXINE HYDROCHLORIDE
     Route: 065
  2. ESOMEPRAZOLE [Concomitant]
     Active Substance: ESOMEPRAZOLE
     Route: 065
  3. REMICADE [Suspect]
     Active Substance: INFLIXIMAB
     Indication: ANKYLOSING SPONDYLITIS
     Route: 042
     Dates: start: 20160328
  4. REMICADE [Suspect]
     Active Substance: INFLIXIMAB
     Indication: ANKYLOSING SPONDYLITIS
     Route: 042
     Dates: start: 20140723
  5. PYRIDOXINE [Concomitant]
     Active Substance: PYRIDOXINE
     Route: 065

REACTIONS (3)
  - Off label use [Unknown]
  - Inappropriate schedule of drug administration [Unknown]
  - Tuberculosis [Not Recovered/Not Resolved]

NARRATIVE: CASE EVENT DATE: 20140723
